FAERS Safety Report 26072806 (Version 1)
Quarter: 2025Q4

REPORT INFORMATION
  Report Type: Report from Study
  Country: EU (occurrence: EU)
  Receive Date: 20251121
  Receipt Date: 20251121
  Transmission Date: 20260117
  Serious: Yes (Hospitalization)
  Sender: ACCORD
  Company Number: None

PATIENT
  Age: 62 Year
  Sex: Female

DRUGS (3)
  1. USTEKINUMAB [Interacting]
     Active Substance: USTEKINUMAB
     Indication: Crohn^s disease
     Dates: start: 20220906
  2. UPADACITINIB [Interacting]
     Active Substance: UPADACITINIB
     Indication: Ankylosing spondylitis
     Dates: start: 20241004, end: 20250221
  3. PREDNISONE [Interacting]
     Active Substance: PREDNISONE
     Indication: Crohn^s disease
     Dates: start: 20200926

REACTIONS (3)
  - Pyelonephritis [Recovered/Resolved]
  - Pharyngitis [Recovered/Resolved]
  - Otitis media [Recovered/Resolved]

NARRATIVE: CASE EVENT DATE: 20241113
